FAERS Safety Report 18479758 (Version 2)
Quarter: 2021Q2

REPORT INFORMATION
  Report Type: Report from Study
  Country: US (occurrence: US)
  Receive Date: 20201109
  Receipt Date: 20210512
  Transmission Date: 20210717
  Serious: Yes (Other)
  Sender: FDA-Public Use
  Company Number: US-ROCHE-2709353

PATIENT
  Age: 68 Year
  Sex: Female

DRUGS (1)
  1. ATEZOLIZUMAB. [Suspect]
     Active Substance: ATEZOLIZUMAB
     Indication: BREAST NEOPLASM
     Route: 042

REACTIONS (3)
  - Activated partial thromboplastin time prolonged [Unknown]
  - Anaemia [Unknown]
  - Lymphocyte count decreased [Unknown]
